FAERS Safety Report 17827143 (Version 2)
Quarter: 2020Q2

REPORT INFORMATION
  Report Type: Spontaneous
  Country: RU (occurrence: RU)
  Receive Date: 20200527
  Receipt Date: 20200611
  Transmission Date: 20200714
  Serious: Yes (Other)
  Sender: FDA-Public Use
  Company Number: RU-GLAXOSMITHKLINE-RU2020086485

PATIENT
  Sex: Female

DRUGS (3)
  1. DICLOFENAC [Suspect]
     Active Substance: DICLOFENAC
     Dosage: 150 MG, QD
     Route: 065
  2. DICLOFENAC [Suspect]
     Active Substance: DICLOFENAC
     Dosage: 100 MG, QD
     Route: 065
  3. DICLOFENAC [Suspect]
     Active Substance: DICLOFENAC
     Indication: OSTEOARTHRITIS
     Dosage: 50 MG, QD
     Route: 065

REACTIONS (1)
  - Gastric haemorrhage [Unknown]
